FAERS Safety Report 12551120 (Version 1)
Quarter: 2016Q3

REPORT INFORMATION
  Report Type: Spontaneous
  Country: US (occurrence: US)
  Receive Date: 20160713
  Receipt Date: 20160713
  Transmission Date: 20161109
  Serious: Yes (Other)
  Sender: FDA-Public Use
  Company Number: US-ROCHE-1789948

PATIENT
  Sex: Female
  Weight: 68.1 kg

DRUGS (10)
  1. LUCENTIS [Suspect]
     Active Substance: RANIBIZUMAB
     Route: 031
     Dates: start: 2014, end: 201506
  2. MONTELUKAST [Concomitant]
     Active Substance: MONTELUKAST SODIUM
  3. VAGIFEM [Concomitant]
     Active Substance: ESTRADIOL
  4. EYLEA [Suspect]
     Active Substance: AFLIBERCEPT
     Indication: NEOVASCULAR AGE-RELATED MACULAR DEGENERATION
     Route: 031
     Dates: start: 2014, end: 2014
  5. EYLEA [Suspect]
     Active Substance: AFLIBERCEPT
     Route: 031
  6. ADVAIR HFA [Concomitant]
     Active Substance: FLUTICASONE PROPIONATE\SALMETEROL XINAFOATE
  7. LUCENTIS [Suspect]
     Active Substance: RANIBIZUMAB
     Route: 031
     Dates: start: 201605, end: 201605
  8. EYLEA [Suspect]
     Active Substance: AFLIBERCEPT
     Route: 031
     Dates: start: 20150624
  9. FLONASE (UNITED STATES) [Concomitant]
  10. LUCENTIS [Suspect]
     Active Substance: RANIBIZUMAB
     Indication: NEOVASCULAR AGE-RELATED MACULAR DEGENERATION
     Route: 031
     Dates: start: 2011, end: 2014

REACTIONS (8)
  - Cough [Unknown]
  - Malaise [Unknown]
  - Ear infection [Unknown]
  - Asthma [Unknown]
  - Injection site injury [Unknown]
  - Vitreous detachment [Unknown]
  - Dyspnoea [Unknown]
  - Wrong drug administered [Unknown]

NARRATIVE: CASE EVENT DATE: 2014
